FAERS Safety Report 24665120 (Version 1)
Quarter: 2024Q4

REPORT INFORMATION
  Report Type: Spontaneous
  Country: US (occurrence: None)
  Receive Date: 20241121
  Receipt Date: 20241121
  Transmission Date: 20250115
  Serious: Yes (Other)
  Sender: Public
  Company Number: None

PATIENT
  Age: 9 Day
  Sex: Female
  Weight: 3.18 kg

DRUGS (1)
  1. BEYFORTUS [Suspect]
     Active Substance: NIRSEVIMAB-ALIP

REACTIONS (3)
  - Constipation [None]
  - Flatulence [None]
  - Dyschezia [None]

NARRATIVE: CASE EVENT DATE: 20241121
